FAERS Safety Report 9107058 (Version 2)
Quarter: 2013Q2

REPORT INFORMATION
  Report Type: Spontaneous
  Country: US (occurrence: US)
  Receive Date: 20130221
  Receipt Date: 20130503
  Transmission Date: 20140414
  Serious: Yes (Hospitalization)
  Sender: FDA-Public Use
  Company Number: US-ELI_LILLY_AND_COMPANY-US201105008796

PATIENT
  Age: 58 Year
  Sex: Female

DRUGS (7)
  1. FORTEO [Suspect]
     Indication: OSTEOPOROSIS
     Dosage: 20 UG, QD
     Route: 058
     Dates: start: 20110419
  2. FORTEO [Suspect]
     Dosage: 20 UG, QD
     Route: 058
  3. FORTEO [Suspect]
     Dosage: 20 UG, QD
     Route: 058
  4. FORTEO [Suspect]
     Dosage: 20 UG, QD
     Route: 058
  5. FORTEO [Suspect]
     Dosage: 20 UG, QD
     Route: 058
  6. FORTEO [Suspect]
     Dosage: 20 MG, QD
     Route: 058
  7. LORCET [Concomitant]
     Dosage: UNK, BID

REACTIONS (11)
  - Drug dose omission [Unknown]
  - Chronic obstructive pulmonary disease [Recovered/Resolved]
  - Breast enlargement [Unknown]
  - Influenza [Unknown]
  - Malaise [Unknown]
  - Abdominal discomfort [Unknown]
  - Fatigue [Not Recovered/Not Resolved]
  - Abnormal behaviour [Unknown]
  - Pain [Unknown]
  - Injection site pain [Unknown]
  - Nausea [Unknown]
